FAERS Safety Report 23249913 (Version 1)
Quarter: 2023Q4

REPORT INFORMATION
  Report Type: Spontaneous
  Country: NP (occurrence: NP)
  Receive Date: 20231201
  Receipt Date: 20231201
  Transmission Date: 20240110
  Serious: Yes (Hospitalization)
  Sender: FDA-Public Use
  Company Number: NP-STERISCIENCE B.V.-2023-ST-002245

PATIENT
  Age: 22 Year
  Sex: Female
  Weight: 64 kg

DRUGS (7)
  1. BUPIVACAINE [Suspect]
     Active Substance: BUPIVACAINE
     Indication: Spinal anaesthesia
     Dosage: 2.2 MILLILITER, (11 MG), INJECTION
     Route: 037
  2. ONDANSETRON [Suspect]
     Active Substance: ONDANSETRON
     Indication: Product used for unknown indication
     Dosage: 4 MILLIGRAM, INJECTION
     Route: 065
  3. METOCLOPRAMIDE [Suspect]
     Active Substance: METOCLOPRAMIDE
     Indication: Product used for unknown indication
     Dosage: 10 MILLIGRAM
     Route: 065
  4. RANITIDINE [Suspect]
     Active Substance: RANITIDINE
     Indication: Product used for unknown indication
     Dosage: 50 MILLIGRAM
     Route: 042
  5. LACTATED RINGERS SOLUTION [Suspect]
     Active Substance: CALCIUM CHLORIDE\POTASSIUM CHLORIDE\SODIUM CHLORIDE\SODIUM LACTATE
     Indication: Hypotension
     Dosage: 1000 ML FOR UNKNOWN INDICATION; INTRAVENOUS INFUSION
     Route: 042
  6. LACTATED RINGERS SOLUTION [Suspect]
     Active Substance: CALCIUM CHLORIDE\POTASSIUM CHLORIDE\SODIUM CHLORIDE\SODIUM LACTATE
     Dosage: 250 MILLILITER, FOR HYPOTENSION; INFUSION
     Route: 042
  7. MEPHENTERMINE [Suspect]
     Active Substance: MEPHENTERMINE
     Indication: Hypotension
     Dosage: 12 MILLIGRAM
     Route: 065

REACTIONS (3)
  - Aphonia [Recovered/Resolved]
  - Hypotension [None]
  - Maternal exposure during delivery [Unknown]
